FAERS Safety Report 7809519-4 (Version None)
Quarter: 2011Q4

REPORT INFORMATION
  Report Type: 
  Country: None (occurrence: None)
  Receive Date: 20111012
  Receipt Date: 20110930
  Transmission Date: 20120403
  Serious: Yes (Hospitalization)
  Sender: FDA-Public Use
  Company Number: PHHO2011DE15585

PATIENT
  Sex: Male
  Weight: 70 kg

DRUGS (4)
  1. MYFORTIC [Suspect]
     Indication: RENAL TRANSPLANT
     Dosage: 1440 MG, UNK
     Dates: start: 20110629, end: 20110908
  2. PROGRAF [Concomitant]
     Dosage: UNK
     Dates: start: 20110919
  3. RAD 666 [Suspect]
     Indication: RENAL TRANSPLANT
     Dosage: 3 MG, UNK
     Route: 048
     Dates: start: 20110824, end: 20110919
  4. PREDNISONE [Concomitant]
     Indication: RENAL TRANSPLANT
     Dosage: 5 MG, UNK
     Dates: start: 20110629

REACTIONS (2)
  - INFECTION [None]
  - PANCYTOPENIA [None]
